FAERS Safety Report 18754119 (Version 2)
Quarter: 2021Q1

REPORT INFORMATION
  Report Type: Other
  Country: DE (occurrence: DE)
  Receive Date: 20210119
  Receipt Date: 20210326
  Transmission Date: 20210419
  Serious: Yes (Other)
  Sender: FDA-Public Use
  Company Number: DE-ROCHE-2269259

PATIENT
  Age: 31 Year
  Sex: Female

DRUGS (6)
  1. VITAMIN D3 [Concomitant]
     Active Substance: CHOLECALCIFEROL
  2. OCREVUS [Suspect]
     Active Substance: OCRELIZUMAB
     Indication: RELAPSING-REMITTING MULTIPLE SCLEROSIS
     Dosage: ON 30/JAN/2020, SHE RECEIVED HER LATEST INFUSION OF OCRELIZUMAB.
     Route: 042
     Dates: start: 20190114
  3. CORTISONE [Suspect]
     Active Substance: CORTISONE
     Indication: PREMEDICATION
     Route: 065
  4. OCREVUS [Suspect]
     Active Substance: OCRELIZUMAB
     Dosage: LAST DOSE: 22/JUL/2020
     Route: 042
     Dates: start: 20190723
  5. L?THYROXIN [Concomitant]
     Active Substance: LEVOTHYROXINE SODIUM
  6. OCREVUS [Suspect]
     Active Substance: OCRELIZUMAB
     Route: 042
     Dates: start: 20210106

REACTIONS (17)
  - Arrhythmia [Recovered/Resolved]
  - Fatigue [Recovered/Resolved]
  - Paraesthesia [Recovered/Resolved]
  - Disturbance in attention [Recovered/Resolved]
  - Muscle twitching [Recovering/Resolving]
  - Nasopharyngitis [Recovered/Resolved]
  - Fall [Unknown]
  - Neurodermatitis [Recovered/Resolved]
  - Fatigue [Recovered/Resolved]
  - Multiple sclerosis [Recovered/Resolved]
  - Cough [Recovered/Resolved]
  - Headache [Recovered/Resolved]
  - Restlessness [Recovered/Resolved]
  - Sensory disturbance [Recovered/Resolved]
  - Magnetic resonance imaging spinal abnormal [Not Recovered/Not Resolved]
  - Extrasystoles [Recovered/Resolved]
  - Ligament rupture [Recovered/Resolved]

NARRATIVE: CASE EVENT DATE: 20190114
